FAERS Safety Report 6971056-7 (Version None)
Quarter: 2010Q3

REPORT INFORMATION
  Report Type: 
  Country: None (occurrence: None)
  Receive Date: 20100908
  Receipt Date: 20100827
  Transmission Date: 20110219
  Serious: Yes (Other)
  Sender: FDA-Public Use
  Company Number: US-PFIZER INC-2010092103

PATIENT
  Sex: Male
  Weight: 64 kg

DRUGS (4)
  1. GENOTROPIN [Suspect]
     Indication: GROWTH RETARDATION
     Dosage: 2.5 MG, 1X/DAY
     Dates: start: 20100312, end: 20100329
  2. GENOTROPIN [Suspect]
     Dosage: 1.2 MG, 1X/DAY
  3. FOSAMAX [Concomitant]
     Indication: OSTEOPOROSIS
     Dosage: 70 MG, WEEKLY
  4. CALCIUM [Concomitant]
     Indication: OSTEOPOROSIS
     Dosage: 45 MG, EVERY OTHER DAY
     Route: 048

REACTIONS (6)
  - HEADACHE [None]
  - INTRACRANIAL PRESSURE INCREASED [None]
  - NAUSEA [None]
  - PAPILLOEDEMA [None]
  - STRABISMUS [None]
  - VOMITING [None]
